FAERS Safety Report 9615932 (Version 1)
Quarter: 2013Q4

REPORT INFORMATION
  Report Type: Spontaneous
  Country: US (occurrence: None)
  Receive Date: 20131010
  Receipt Date: 20131010
  Transmission Date: 20140711
  Serious: Yes (Disabling)
  Sender: FDA-Public Use
  Company Number: None

PATIENT
  Age: 47 Year
  Sex: Female
  Weight: 127.01 kg

DRUGS (5)
  1. CHANTIX [Suspect]
     Indication: SMOKING CESSATION THERAPY
     Dates: start: 20070826, end: 20070909
  2. LEVOTHYROXINE [Concomitant]
  3. KLONOPIN [Concomitant]
  4. MINOCYCLINE [Concomitant]
  5. MULTI-VITAMIN SUPPLEMENT [Concomitant]

REACTIONS (5)
  - Fibromyalgia [None]
  - Influenza like illness [None]
  - Arthralgia [None]
  - Myalgia [None]
  - Impaired work ability [None]
